FAERS Safety Report 8534901-X (Version None)
Quarter: 2012Q3

REPORT INFORMATION
  Report Type: 
  Country: None (occurrence: None)
  Receive Date: 20120724
  Receipt Date: 20120720
  Transmission Date: 20120928
  Serious: Yes (Hospitalization)
  Sender: FDA-Public Use
  Company Number: US-B.I. PHARMACEUTICALS,INC./RIDGEFIELD-2012-BP-16281BP

PATIENT
  Age: 62 Year
  Sex: Female
  Weight: 77 kg

DRUGS (18)
  1. TRAZODONE HYDROCHLORIDE [Concomitant]
     Indication: INSOMNIA
     Route: 048
     Dates: start: 20090101
  2. COZAAR [Concomitant]
     Indication: BLOOD PRESSURE
     Dosage: 100 MG
     Route: 048
     Dates: start: 20120101
  3. ASPIRIN [Concomitant]
     Indication: CEREBROVASCULAR ACCIDENT PROPHYLAXIS
     Dosage: 81 MG
     Route: 048
     Dates: start: 20070101
  4. SPIRIVA [Suspect]
     Indication: CHRONIC OBSTRUCTIVE PULMONARY DISEASE
     Dosage: 18 MCG
     Route: 055
     Dates: start: 20090101
  5. PROVENTIL [Concomitant]
     Indication: CHRONIC OBSTRUCTIVE PULMONARY DISEASE
     Route: 055
     Dates: start: 20080101
  6. HYDROCODONE [Concomitant]
     Indication: BACK PAIN
     Route: 048
  7. EXCEDERIN GENERIC [Concomitant]
     Indication: HEADACHE
     Route: 048
  8. BENADRYL [Concomitant]
     Indication: HYPERSENSITIVITY
  9. BENADRYL [Concomitant]
     Indication: INSOMNIA
     Route: 048
  10. STOOL SOFTENER [Concomitant]
     Indication: RECTOCELE
     Route: 048
  11. MUCINEX [Concomitant]
     Indication: PULMONARY CONGESTION
     Route: 048
     Dates: start: 20120719
  12. ALBUTEROL [Concomitant]
     Indication: CHRONIC OBSTRUCTIVE PULMONARY DISEASE
     Route: 055
     Dates: start: 20080101
  13. QVAR 40 [Concomitant]
     Indication: CHRONIC OBSTRUCTIVE PULMONARY DISEASE
     Dosage: 80 MCG
     Route: 048
     Dates: start: 20100101
  14. PROZAC [Concomitant]
     Indication: DEPRESSION
     Route: 048
     Dates: start: 20100101
  15. XANAX [Concomitant]
     Indication: ANXIETY
     Route: 048
     Dates: start: 20030101
  16. OXYGEN [Concomitant]
     Indication: CHRONIC OBSTRUCTIVE PULMONARY DISEASE
     Dates: start: 20080101
  17. POTASSIUM CHLORIDE [Concomitant]
     Indication: BLOOD POTASSIUM DECREASED
     Dosage: 10 MEQ
     Route: 048
     Dates: start: 20100101
  18. HYDROCHLOROTHIAZIDE [Concomitant]
     Indication: BLOOD PRESSURE
     Dosage: 25 MG
     Route: 048

REACTIONS (9)
  - HAEMATOMA [None]
  - OEDEMA PERIPHERAL [None]
  - BLOOD POTASSIUM DECREASED [None]
  - SINUS DISORDER [None]
  - MIGRAINE [None]
  - CONTUSION [None]
  - FALL [None]
  - BLOOD SODIUM DECREASED [None]
  - ANKLE FRACTURE [None]
